FAERS Safety Report 6753014-0 (Version None)
Quarter: 2010Q2

REPORT INFORMATION
  Report Type: 
  Country: None (occurrence: None)
  Receive Date: 20100602
  Receipt Date: 20100602
  Transmission Date: 20101027
  Serious: Yes (Hospitalization)
  Sender: FDA-Public Use
  Company Number: None

PATIENT
  Age: 78 Year
  Sex: Male
  Weight: 68.9467 kg

DRUGS (2)
  1. LEVAQUIN [Suspect]
     Indication: PROPHYLAXIS
     Dosage: 500 MG DAILY PO
     Route: 048
     Dates: start: 20100514, end: 20100524
  2. CIPRO [Concomitant]

REACTIONS (1)
  - NEPHROPATHY TOXIC [None]
